FAERS Safety Report 4592193-0 (Version None)
Quarter: 2005Q1

REPORT INFORMATION
  Report Type: 
  Country: None (occurrence: None)
  Receive Date: 20050227
  Receipt Date: 20050216
  Transmission Date: 20050727
  Serious: Yes (Hospitalization)
  Sender: FDA-Public Use
  Company Number: GB-JNJFOC-20050204511

PATIENT
  Age: 65 Year
  Sex: Male

DRUGS (8)
  1. REOPRO [Suspect]
     Indication: CORONARY ARTERIAL STENT INSERTION
     Route: 042
  2. NITROGLYCERIN [Concomitant]
     Route: 060
  3. ASPIRIN [Concomitant]
     Indication: MYOCARDIAL INFARCTION
     Route: 049
  4. CLOPIDOGREL [Concomitant]
     Route: 049
  5. BISOPROLOL [Concomitant]
     Indication: MYOCARDIAL INFARCTION
     Route: 049
  6. BISOPROLOL [Concomitant]
     Indication: LEFT VENTRICULAR FAILURE
     Route: 049
  7. RAMIPRIL [Concomitant]
     Indication: MYOCARDIAL INFARCTION
     Route: 049
  8. OMEPRAZOLE [Concomitant]
     Indication: DYSPEPSIA
     Route: 049

REACTIONS (6)
  - ACTIVATED PARTIAL THROMBOPLASTIN TIME PROLONGED [None]
  - ANTIPHOSPHOLIPID ANTIBODIES POSITIVE [None]
  - ARTHRALGIA [None]
  - JOINT STIFFNESS [None]
  - JOINT SWELLING [None]
  - TYPE III IMMUNE COMPLEX MEDIATED REACTION [None]
